FAERS Safety Report 11064324 (Version 1)
Quarter: 2015Q2

REPORT INFORMATION
  Report Type: Report from Study
  Country: US (occurrence: US)
  Receive Date: 20150424
  Receipt Date: 20150424
  Transmission Date: 20150821
  Serious: Yes (Other)
  Sender: FDA-Public Use
  Company Number: US-GILEAD-2015-0149616

PATIENT
  Age: 83 Year
  Sex: Female

DRUGS (1)
  1. RANOLAZINE [Suspect]
     Active Substance: RANOLAZINE
     Indication: ANGINA PECTORIS
     Dosage: 500 MG, UNK
     Route: 048

REACTIONS (10)
  - Angina pectoris [Unknown]
  - Activities of daily living impaired [Unknown]
  - Skin discolouration [Unknown]
  - Cardiac failure [Unknown]
  - Thrombosis [Unknown]
  - Fall [Unknown]
  - Gait disturbance [Unknown]
  - Colitis ulcerative [Unknown]
  - Peripheral swelling [Unknown]
  - Contusion [Unknown]

NARRATIVE: CASE EVENT DATE: 20150417
